FAERS Safety Report 16766398 (Version 1)
Quarter: 2019Q3

REPORT INFORMATION
  Report Type: Other
  Country: US (occurrence: US)
  Receive Date: 20190903
  Receipt Date: 20190903
  Transmission Date: 20191005
  Serious: Yes (Hospitalization)
  Sender: FDA-Public Use
  Company Number: US-GRANULES INDIA LIMITED-2073933

PATIENT
  Age: 33 Year
  Sex: Male

DRUGS (3)
  1. GABAPENTIN CAPSULES USP, 100MG, 300 MG AND 400 MG [Suspect]
     Active Substance: GABAPENTIN
     Indication: ALCOHOLISM
     Route: 065
  2. QUETIAPINE. [Concomitant]
     Active Substance: QUETIAPINE
     Route: 065
  3. PAROXETINE. [Concomitant]
     Active Substance: PAROXETINE
     Route: 065

REACTIONS (4)
  - Withdrawal syndrome [Recovered/Resolved]
  - Incorrect dose administered [Unknown]
  - Delirium tremens [Recovered/Resolved]
  - Drug abuse [Unknown]
